FAERS Safety Report 6440853-9 (Version None)
Quarter: 2009Q4

REPORT INFORMATION
  Report Type: 
  Country: None (occurrence: None)
  Receive Date: 20091116
  Receipt Date: 20091014
  Transmission Date: 20100525
  Serious: Yes (Hospitalization)
  Sender: FDA-Public Use
  Company Number: US-B.I. PHARMACEUTICALS,INC./RIDGEFIELD-2009-BP-09955YA

PATIENT
  Age: 69 Year
  Sex: Male
  Weight: 81.1 kg

DRUGS (17)
  1. TAMSULOSIN HCL [Suspect]
     Route: 048
  2. SUNITINIB [Suspect]
     Indication: RENAL CELL CARCINOMA
     Route: 048
     Dates: start: 20061213, end: 20061228
  3. SUNITINIB [Suspect]
     Route: 048
     Dates: start: 20061229, end: 20070101
  4. CLONIDINE [Suspect]
  5. COZAAR [Suspect]
  6. LASIX [Suspect]
  7. MICARDIS [Suspect]
  8. TOPROL-XL [Suspect]
  9. AMBIEN [Concomitant]
  10. ENBREL [Concomitant]
  11. GLIPIZIDE [Concomitant]
  12. HYDROCODONE (HYDROCODONE) [Concomitant]
  13. LEXAPRO [Concomitant]
  14. LIPITOR [Concomitant]
  15. METFORMIN HCL [Concomitant]
  16. NEXIUM (ESOMEPRAZOLE SODIUM) [Concomitant]
  17. PREDNISONE TAB [Concomitant]

REACTIONS (5)
  - FATIGUE [None]
  - HEADACHE [None]
  - HYPERTENSION [None]
  - HYPOTENSION [None]
  - MUCOSAL INFLAMMATION [None]
